FAERS Safety Report 5366988-X (Version None)
Quarter: 2007Q2

REPORT INFORMATION
  Report Type: 
  Country: None (occurrence: None)
  Receive Date: 20070619
  Receipt Date: 20070608
  Transmission Date: 20071010
  Serious: Yes (Hospitalization, Other)
  Sender: FDA-Public Use
  Company Number: GXKR2007GB05014

PATIENT
  Sex: Male

DRUGS (2)
  1. METFORMIN HCL [Suspect]
  2. AVANDAMET [Suspect]
     Dosage: ORAL
     Route: 048

REACTIONS (3)
  - DEPRESSED MOOD [None]
  - FATIGUE [None]
  - HIGH DENSITY LIPOPROTEIN DECREASED [None]
